FAERS Safety Report 7669819-8 (Version None)
Quarter: 2011Q3

REPORT INFORMATION
  Report Type: 
  Country: None (occurrence: None)
  Receive Date: 20110808
  Receipt Date: 20100726
  Transmission Date: 20111222
  Serious: Yes (Hospitalization)
  Sender: FDA-Public Use
  Company Number: FR-NOVOPROD-332706

PATIENT

DRUGS (12)
  1. BISPROLOL COMP [Concomitant]
  2. TRIMEBUTINE [Concomitant]
     Dosage: 3/DAY
  3. REPAGLINIDE [Suspect]
     Indication: PRODUCT USED FOR UNKNOWN INDICATION
     Route: 065
  4. CLOPIDOGREL [Concomitant]
     Dosage: 1/DAY
  5. LEVOTHYROXINE SODIUM [Concomitant]
     Dosage: 125 UG, QD
  6. CLONAZEPAM [Concomitant]
  7. LYRICA [Concomitant]
     Dosage: 1/NIGHT
  8. SITAGLIPTIN PHOSPHATE [Concomitant]
     Dosage: 1/DAY
  9. METFORMIN HCL [Concomitant]
     Dosage: 2/DAY
  10. REPAGLINIDE [Concomitant]
  11. AMOXICILLINE                       /00249602/ [Concomitant]
  12. COLCHICINE [Concomitant]

REACTIONS (1)
  - VASCULAR PURPURA [None]
